FAERS Safety Report 8007436-0 (Version None)
Quarter: 2011Q4

REPORT INFORMATION
  Report Type: 
  Country: None (occurrence: None)
  Receive Date: 20111222
  Receipt Date: 20111222
  Transmission Date: 20120403
  Serious: Yes (Hospitalization)
  Sender: FDA-Public Use
  Company Number: None

PATIENT
  Age: 65 Year
  Sex: Female
  Weight: 71.6 kg

DRUGS (2)
  1. VALSARTAN [Suspect]
     Indication: CARDIAC FAILURE CONGESTIVE
     Dosage: 160 MG EVERY DAY PO
     Route: 048
     Dates: start: 20110228, end: 20110609
  2. VALSARTAN [Suspect]
     Indication: HYPERTENSION
     Dosage: 160 MG EVERY DAY PO
     Route: 048
     Dates: start: 20110228, end: 20110609

REACTIONS (9)
  - APNOEIC ATTACK [None]
  - PYREXIA [None]
  - EOSINOPHIL COUNT INCREASED [None]
  - ODYNOPHAGIA [None]
  - OROPHARYNGEAL PAIN [None]
  - TONSILLITIS [None]
  - LOCAL SWELLING [None]
  - MOUTH HAEMORRHAGE [None]
  - ANGIOEDEMA [None]
